FAERS Safety Report 9686645 (Version 1)
Quarter: 2013Q4

REPORT INFORMATION
  Report Type: Spontaneous
  Country: US (occurrence: US)
  Receive Date: 20131113
  Receipt Date: 20131113
  Transmission Date: 20140711
  Serious: Yes (Other)
  Sender: FDA-Public Use
  Company Number: US-ELI_LILLY_AND_COMPANY-US201311001979

PATIENT
  Sex: Female

DRUGS (3)
  1. EVISTA [Suspect]
     Indication: OSTEOPENIA
     Dosage: 60 MG, QD
     Route: 065
     Dates: start: 2003
  2. TOPROL [Concomitant]
     Dosage: 50 MG, QD
  3. OMEPRAZOLE [Concomitant]

REACTIONS (5)
  - Convulsion [Unknown]
  - Diplopia [Unknown]
  - Dry eye [Unknown]
  - Staring [Unknown]
  - Abnormal behaviour [Unknown]
